FAERS Safety Report 9830585 (Version 3)
Quarter: 2015Q2

REPORT INFORMATION
  Report Type: Report from Study
  Country: US (occurrence: US)
  Receive Date: 20140120
  Receipt Date: 20150630
  Transmission Date: 20150821
  Serious: Yes (Hospitalization, Other)
  Sender: FDA-Public Use
  Company Number: US-ABBVIE-13P-163-1129653-00

PATIENT
  Sex: Female
  Weight: 52.21 kg

DRUGS (8)
  1. LEVOTHYROXINE [Concomitant]
     Active Substance: LEVOTHYROXINE
     Indication: HYPOTHYROIDISM
  2. OMEPRAZOLE. [Concomitant]
     Active Substance: OMEPRAZOLE
     Indication: GASTROOESOPHAGEAL REFLUX DISEASE
  3. METHOTREXATE [Concomitant]
     Active Substance: METHOTREXATE
     Indication: RHEUMATOID ARTHRITIS
  4. FOLIC ACID. [Concomitant]
     Active Substance: FOLIC ACID
     Indication: PRODUCT USED FOR UNKNOWN INDICATION
  5. HUMIRA [Suspect]
     Active Substance: ADALIMUMAB
     Route: 058
     Dates: start: 201111
  6. METHOTREXATE [Concomitant]
     Active Substance: METHOTREXATE
     Route: 048
  7. HUMIRA [Suspect]
     Active Substance: ADALIMUMAB
     Indication: RHEUMATOID ARTHRITIS
     Route: 058
     Dates: start: 2010, end: 201101
  8. HUMIRA [Suspect]
     Active Substance: ADALIMUMAB
     Route: 058
     Dates: start: 201102

REACTIONS (12)
  - Joint lock [Recovered/Resolved]
  - Rotator cuff syndrome [Not Recovered/Not Resolved]
  - Memory impairment [Not Recovered/Not Resolved]
  - Arthritis [Not Recovered/Not Resolved]
  - Osteoporosis [Not Recovered/Not Resolved]
  - Brain injury [Unknown]
  - Hyperkeratosis [Not Recovered/Not Resolved]
  - Drooling [Not Recovered/Not Resolved]
  - Arthralgia [Not Recovered/Not Resolved]
  - Foot deformity [Recovered/Resolved]
  - Transient ischaemic attack [Not Recovered/Not Resolved]
  - Pain in extremity [Not Recovered/Not Resolved]

NARRATIVE: CASE EVENT DATE: 2013
